FAERS Safety Report 8671829 (Version 3)
Quarter: 2016Q3

REPORT INFORMATION
  Report Type: Spontaneous
  Country: US (occurrence: US)
  Receive Date: 20120718
  Receipt Date: 20160728
  Transmission Date: 20161109
  Serious: Yes (Death, Hospitalization, Other)
  Sender: FDA-Public Use
  Company Number: US-009507513-1207USA003753

PATIENT
  Sex: Female

DRUGS (2)
  1. FOSAMAX [Suspect]
     Active Substance: ALENDRONATE SODIUM
     Indication: OSTEOPENIA
     Dosage: 10 MG, UNK
     Route: 048
     Dates: start: 20030128, end: 20090303
  2. FOSAMAX [Suspect]
     Active Substance: ALENDRONATE SODIUM
     Indication: OSTEOPOROSIS

REACTIONS (18)
  - Femur fracture [Unknown]
  - Femur fracture [Recovered/Resolved]
  - Abdominal pain [Unknown]
  - Pain in extremity [Unknown]
  - Femur fracture [Unknown]
  - Chronic obstructive pulmonary disease [Unknown]
  - Abdominal pain [Unknown]
  - Fracture nonunion [Unknown]
  - Device breakage [Unknown]
  - Shock [Unknown]
  - Dehydration [Unknown]
  - Death [Fatal]
  - Low turnover osteopathy [Unknown]
  - Femur fracture [Unknown]
  - Peptic ulcer [Unknown]
  - Abdominal pain [Unknown]
  - Fall [Unknown]
  - Device breakage [Unknown]

NARRATIVE: CASE EVENT DATE: 20030602
